FAERS Safety Report 9830833 (Version 2)
Quarter: 2014Q1

REPORT INFORMATION
  Report Type: Spontaneous
  Country: CH (occurrence: CH)
  Receive Date: 20140120
  Receipt Date: 20140205
  Transmission Date: 20141002
  Serious: Yes (Hospitalization, Other)
  Sender: FDA-Public Use
  Company Number: CH-009507513-1401CHE007484

PATIENT
  Age: 45 Year
  Sex: Female

DRUGS (2)
  1. REMERON SOLTAB [Suspect]
     Dosage: MAX. 24 DF AT ONCE
     Route: 048
     Dates: start: 20131024, end: 20131024
  2. TRAZODONE HYDROCHLORIDE [Suspect]
     Dosage: MAX. 20 DF AT ONCE
     Route: 048
     Dates: start: 20131024, end: 20131024

REACTIONS (9)
  - Coma [Recovered/Resolved]
  - Electrocardiogram QT prolonged [Recovered/Resolved]
  - Hyperthermia [Recovered/Resolved]
  - Tachycardia [Recovered/Resolved]
  - Endotracheal intubation [Recovered/Resolved]
  - Bradycardia [Recovered/Resolved]
  - Suicide attempt [Recovered/Resolved]
  - Vomiting [Recovered/Resolved]
  - Intentional overdose [Unknown]
